FAERS Safety Report 9351154 (Version 1)
Quarter: 2013Q2

REPORT INFORMATION
  Report Type: Report from Study
  Country: FR (occurrence: FR)
  Receive Date: 20130617
  Receipt Date: 20130617
  Transmission Date: 20140414
  Serious: Yes (Disabling, Other)
  Sender: FDA-Public Use
  Company Number: FR-CELGENEUS-056-21880-12112207

PATIENT
  Age: 55 Year
  Sex: Female

DRUGS (11)
  1. REVLIMID [Suspect]
     Indication: PLASMA CELL MYELOMA
     Route: 048
     Dates: start: 20120914, end: 20121025
  2. REVLIMID [Suspect]
     Route: 048
     Dates: end: 20130402
  3. BORTEZOMIB [Suspect]
     Indication: PLASMA CELL MYELOMA
     Route: 065
     Dates: start: 20120914
  4. BORTEZOMIB [Suspect]
     Route: 065
     Dates: end: 20121119
  5. DEXAMETHASONE [Suspect]
     Indication: PLASMA CELL MYELOMA
     Route: 065
     Dates: start: 20120914
  6. ZECLAR [Suspect]
     Indication: PRODUCT USED FOR UNKNOWN INDICATION
     Route: 065
  7. AMOXICILLINE [Suspect]
     Indication: PRODUCT USED FOR UNKNOWN INDICATION
     Route: 065
  8. BACTRIM [Suspect]
     Indication: PRODUCT USED FOR UNKNOWN INDICATION
     Route: 065
  9. SEROPLEX [Concomitant]
     Indication: OBSESSIVE-COMPULSIVE DISORDER
     Route: 048
     Dates: start: 200512
  10. INNOHEP [Concomitant]
     Indication: THROMBOSIS PROPHYLAXIS
     Route: 058
     Dates: start: 20120914
  11. ZELITREX [Concomitant]
     Indication: PROPHYLAXIS
     Route: 048
     Dates: start: 20120914

REACTIONS (2)
  - Peripheral sensorimotor neuropathy [Not Recovered/Not Resolved]
  - Dermatitis exfoliative [Recovered/Resolved]
